FAERS Safety Report 10151772 (Version 2)
Quarter: 2014Q2

REPORT INFORMATION
  Report Type: Spontaneous
  Country: US (occurrence: US)
  Receive Date: 20140505
  Receipt Date: 20140611
  Transmission Date: 20141212
  Serious: Yes (Hospitalization)
  Sender: FDA-Public Use
  Company Number: 2014SP002211

PATIENT
  Age: 58 Year
  Sex: Female
  Weight: 26.65 kg

DRUGS (39)
  1. FLUOROURACIL [Suspect]
     Indication: PANCREATIC CARCINOMA
     Route: 040
     Dates: start: 20140123
  2. FLUOROURACIL [Suspect]
     Indication: PANCREATIC CARCINOMA
     Route: 040
     Dates: start: 20140206
  3. FLUOROURACIL [Suspect]
     Indication: PANCREATIC CARCINOMA
     Route: 040
     Dates: start: 20140220
  4. FLUOROURACIL [Suspect]
     Indication: PANCREATIC CARCINOMA
     Route: 040
     Dates: start: 20140306
  5. FLUOROURACIL [Suspect]
     Indication: PANCREATIC CARCINOMA
     Route: 040
     Dates: start: 20140320
  6. FLUOROURACIL [Suspect]
     Indication: PANCREATIC CARCINOMA
     Route: 040
     Dates: start: 20140410
  7. IRINOTECAN HYDROCHLORIDE [Suspect]
     Indication: PANCREATIC CARCINOMA
     Route: 042
     Dates: start: 20140123
  8. IRINOTECAN HYDROCHLORIDE [Suspect]
     Indication: PANCREATIC CARCINOMA
     Route: 042
     Dates: start: 20140206
  9. IRINOTECAN HYDROCHLORIDE [Suspect]
     Indication: PANCREATIC CARCINOMA
     Route: 042
     Dates: start: 20140220
  10. IRINOTECAN HYDROCHLORIDE [Suspect]
     Indication: PANCREATIC CARCINOMA
     Route: 042
     Dates: start: 20140306
  11. IRINOTECAN HYDROCHLORIDE [Suspect]
     Indication: PANCREATIC CARCINOMA
     Route: 042
     Dates: start: 20140320
  12. IRINOTECAN HYDROCHLORIDE [Suspect]
     Indication: PANCREATIC CARCINOMA
     Route: 042
     Dates: start: 20140410
  13. OXALIPLATIN [Suspect]
     Indication: PANCREATIC CARCINOMA
     Route: 042
     Dates: start: 20140123
  14. OXALIPLATIN [Suspect]
     Indication: PANCREATIC CARCINOMA
     Route: 042
     Dates: start: 20140306
  15. OXALIPLATIN [Suspect]
     Indication: PANCREATIC CARCINOMA
     Route: 042
     Dates: start: 20140220
  16. OXALIPLATIN [Suspect]
     Indication: PANCREATIC CARCINOMA
     Route: 042
     Dates: start: 20140306
  17. OXALIPLATIN [Suspect]
     Indication: PANCREATIC CARCINOMA
     Route: 042
     Dates: start: 20140320
  18. OXALIPLATIN [Suspect]
     Indication: PANCREATIC CARCINOMA
     Route: 042
     Dates: start: 20140410
  19. FOLINIC ACID [Suspect]
     Indication: PANCREATIC CARCINOMA
     Route: 042
     Dates: start: 20140123
  20. FOLINIC ACID [Suspect]
     Indication: PANCREATIC CARCINOMA
     Route: 042
     Dates: start: 20140206
  21. FOLINIC ACID [Suspect]
     Indication: PANCREATIC CARCINOMA
     Route: 042
     Dates: start: 20140220
  22. FOLINIC ACID [Suspect]
     Indication: PANCREATIC CARCINOMA
     Route: 042
     Dates: start: 20140306
  23. FOLINIC ACID [Suspect]
     Indication: PANCREATIC CARCINOMA
     Route: 042
     Dates: start: 20140320
  24. FOLINIC ACID [Suspect]
     Indication: PANCREATIC CARCINOMA
     Route: 042
     Dates: start: 20140410
  25. ATENOLOL [Concomitant]
  26. CITALOPRAM HYDROBROMIDE [Concomitant]
  27. PANCRELIPASE [Concomitant]
  28. DEXAMETHASONE [Concomitant]
  29. DIAZEPAM [Concomitant]
  30. BISACODYL [Concomitant]
  31. ENOXAPARIN [Concomitant]
  32. HYDROCHLOROTHIAZIDE [Concomitant]
  33. HYDROCODONE/APAP [Concomitant]
  34. LISINOPRIL [Concomitant]
  35. DUKES MOUTHWASH [Concomitant]
  36. MORPHINE [Concomitant]
  37. ONDANSETRON [Concomitant]
  38. OXYCODONE [Concomitant]
  39. ERGOCALCIFEROL [Concomitant]

REACTIONS (3)
  - Dehydration [Recovered/Resolved]
  - Fatigue [Recovered/Resolved]
  - Hypotension [Recovered/Resolved]
